FAERS Safety Report 13117642 (Version 5)
Quarter: 2017Q1

REPORT INFORMATION
  Report Type: Spontaneous
  Country: US (occurrence: US)
  Receive Date: 20170116
  Receipt Date: 20170317
  Transmission Date: 20170428
  Serious: Yes (Other)
  Sender: FDA-Public Use
  Company Number: US-GLAXOSMITHKLINE-US2017GSK004655

PATIENT
  Age: 65 Year
  Sex: Female
  Weight: 79.37 kg

DRUGS (2)
  1. SUMATRIPTAN (SUMATRIPTAN SUCCINATE) [Suspect]
     Active Substance: SUMATRIPTAN SUCCINATE
     Indication: MIGRAINE
     Dosage: 6 MG, PRN
     Route: 058
     Dates: start: 201611
  2. SUMATRIPTAN (SUMATRIPTAN SUCCINATE) [Suspect]
     Active Substance: SUMATRIPTAN SUCCINATE
     Dosage: 6 MG, PRN

REACTIONS (10)
  - Circumstance or information capable of leading to medication error [Unknown]
  - Physical product label issue [Unknown]
  - Renal surgery [Unknown]
  - Device use error [Unknown]
  - Adverse event [Not Recovered/Not Resolved]
  - Product quality issue [Unknown]
  - Condition aggravated [Unknown]
  - Nephrolithiasis [Unknown]
  - Ill-defined disorder [Unknown]
  - Device leakage [Unknown]

NARRATIVE: CASE EVENT DATE: 20170111
